FAERS Safety Report 20777010 (Version 2)
Quarter: 2022Q2

REPORT INFORMATION
  Report Type: Spontaneous
  Country: US (occurrence: US)
  Receive Date: 20220502
  Receipt Date: 20220520
  Transmission Date: 20220721
  Serious: Yes (Hospitalization, Other)
  Sender: FDA-Public Use
  Company Number: US-BEH-2022145001

PATIENT
  Sex: Female

DRUGS (4)
  1. HIZENTRA [Suspect]
     Active Substance: HUMAN IMMUNOGLOBULIN G
     Dosage: 7 GRAM, QW
     Route: 058
     Dates: start: 20220225, end: 20220416
  2. ACETAMINOPHEN [Concomitant]
     Active Substance: ACETAMINOPHEN
     Indication: Premedication
     Route: 065
  3. DIPHENHYDRAMINE [Concomitant]
     Active Substance: DIPHENHYDRAMINE
     Indication: Premedication
     Route: 065
  4. PREDNISONE [Concomitant]
     Active Substance: PREDNISONE
     Indication: Premedication
     Route: 065

REACTIONS (10)
  - Infusion site reaction [Unknown]
  - Malaise [Unknown]
  - Burning sensation [Unknown]
  - Blood pressure fluctuation [Unknown]
  - Fall [Unknown]
  - Head injury [Unknown]
  - Influenza like illness [Unknown]
  - Autonomic nervous system imbalance [Unknown]
  - Acute kidney injury [Unknown]
  - Hypotension [Unknown]

NARRATIVE: CASE EVENT DATE: 20220201
